FAERS Safety Report 21451665 (Version 1)
Quarter: 2022Q4

REPORT INFORMATION
  Report Type: Spontaneous
  Country: US (occurrence: None)
  Receive Date: 20221012
  Receipt Date: 20221012
  Transmission Date: 20230113
  Serious: Yes (Other)
  Sender: FDA-Public Use
  Company Number: None

PATIENT
  Age: 70 Year
  Sex: Male
  Weight: 89 kg

DRUGS (3)
  1. DARATUMUMAB [Suspect]
     Active Substance: DARATUMUMAB
     Indication: Amyloidosis
     Dates: start: 20220824, end: 20220825
  2. VRD [Concomitant]
     Dates: start: 20220824, end: 20220831
  3. CYTOXAN [Suspect]
     Active Substance: CYCLOPHOSPHAMIDE

REACTIONS (6)
  - Paraesthesia [None]
  - Infusion related reaction [None]
  - Dizziness [None]
  - Nausea [None]
  - Chills [None]
  - Chills [None]

NARRATIVE: CASE EVENT DATE: 20220824
